FAERS Safety Report 10667687 (Version 1)
Quarter: 2014Q4

REPORT INFORMATION
  Report Type: Spontaneous
  Country: GB (occurrence: GB)
  Receive Date: 20141222
  Receipt Date: 20141222
  Transmission Date: 20150529
  Serious: Yes (Death, Hospitalization, Disabling, Other)
  Sender: FDA-Public Use
  Company Number: GB-TEVA-529292ISR

PATIENT
  Age: 75 Year
  Sex: Male
  Weight: 51 kg

DRUGS (23)
  1. CYCLIZINE [Concomitant]
     Active Substance: CYCLIZINE
  2. MORPHINE [Concomitant]
     Active Substance: MORPHINE
  3. NOVORAPID [Concomitant]
     Active Substance: INSULIN ASPART
  4. MEROPENEM. [Suspect]
     Active Substance: MEROPENEM
     Indication: SEPSIS
     Dosage: 2 GRAM DAILY;
     Route: 042
     Dates: start: 20141027, end: 20141029
  5. PIPERACILLIN AND TAZOBACTAM [Suspect]
     Active Substance: PIPERACILLIN SODIUM\TAZOBACTAM SODIUM
     Indication: SEPSIS
     Dosage: 13.5 GRAM DAILY;
     Route: 042
     Dates: start: 20141025, end: 20141027
  6. BUPRENORPHINE [Concomitant]
     Active Substance: BUPRENORPHINE
  7. SIMVASTATIN. [Concomitant]
     Active Substance: SIMVASTATIN
  8. PROCHLORPERAZINE. [Concomitant]
     Active Substance: PROCHLORPERAZINE
  9. WARFARIN [Concomitant]
     Active Substance: WARFARIN
  10. ATENOLOL. [Concomitant]
     Active Substance: ATENOLOL
  11. BISOPROLOL [Concomitant]
     Active Substance: BISOPROLOL
  12. TINZAPARIN [Concomitant]
     Active Substance: TINZAPARIN
  13. LORAZEPAM. [Concomitant]
     Active Substance: LORAZEPAM
  14. LEVOTHYROXINE [Concomitant]
     Active Substance: LEVOTHYROXINE
  15. ONDANSETRON [Concomitant]
     Active Substance: ONDANSETRON
  16. PARACETAMOL [Concomitant]
     Active Substance: ACETAMINOPHEN
  17. TRAMADOL [Concomitant]
     Active Substance: TRAMADOL
  18. TRIMETHOPRIM. [Suspect]
     Active Substance: TRIMETHOPRIM
     Indication: URINARY TRACT INFECTION
     Dosage: 400 MILLIGRAM DAILY;
     Route: 048
     Dates: start: 20141022, end: 20141025
  19. OMEPRAZOLE. [Concomitant]
     Active Substance: OMEPRAZOLE
  20. SODIUM VALPROATE [Concomitant]
     Active Substance: VALPROATE SODIUM
  21. CEFTRIAXONE. [Suspect]
     Active Substance: CEFTRIAXONE
     Indication: MENINGITIS
     Dosage: 4 GRAM DAILY;
     Route: 042
     Dates: start: 20141007, end: 20141013
  22. ISOSORBIDE [Concomitant]
     Active Substance: ISOSORBIDE
  23. LEVEMIR [Concomitant]
     Active Substance: INSULIN DETEMIR

REACTIONS (3)
  - Clostridium difficile colitis [Unknown]
  - Fall [Fatal]
  - Subdural haemorrhage [Fatal]

NARRATIVE: CASE EVENT DATE: 20141027
